FAERS Safety Report 10161905 (Version 1)
Quarter: 2014Q2

REPORT INFORMATION
  Report Type: Spontaneous
  Country: US (occurrence: None)
  Receive Date: 20140507
  Receipt Date: 20140507
  Transmission Date: 20141212
  Serious: Yes (Hospitalization)
  Sender: FDA-Public Use
  Company Number: UTC-046136

PATIENT
  Age: 52 Year
  Sex: Female
  Weight: 89 kg

DRUGS (2)
  1. REMODULIN (5 MILLIGRAM/MILLILITERS, INJECTION FOR INFUSION) (TREPROSTINIL SODIUM)? [Suspect]
     Indication: PULMONARY ARTERIAL HYPERTENSION
     Dosage: 28.8 UG/KG (0.02 UG/KG, 1 IN 1 MIN), SUBCUTANEOUS
     Route: 058
     Dates: start: 20140219
  2. ADCIRCA (TADALAFIL) [Concomitant]

REACTIONS (2)
  - Palpitations [None]
  - Sinus tachycardia [None]
